FAERS Safety Report 18962941 (Version 1)
Quarter: 2021Q1

REPORT INFORMATION
  Report Type: Spontaneous
  Country: US (occurrence: US)
  Receive Date: 20210303
  Receipt Date: 20210303
  Transmission Date: 20210420
  Serious: No
  Sender: FDA-Public Use
  Company Number: None

PATIENT
  Age: 69 Year
  Sex: Female

DRUGS (1)
  1. BAMLANIVIMAB. [Suspect]
     Active Substance: BAMLANIVIMAB
     Indication: COVID-19
     Dosage: ?          OTHER FREQUENCY:ONE TIME;?
     Route: 041
     Dates: start: 20210302, end: 20210302

REACTIONS (4)
  - Chills [None]
  - Pyrexia [None]
  - Tremor [None]
  - Infusion related reaction [None]

NARRATIVE: CASE EVENT DATE: 20210302
